FAERS Safety Report 7852132-3 (Version None)
Quarter: 2011Q4

REPORT INFORMATION
  Report Type: 
  Country: None (occurrence: None)
  Receive Date: 20111026
  Receipt Date: 20111021
  Transmission Date: 20120403
  Serious: Yes (Other)
  Sender: FDA-Public Use
  Company Number: BR-PFIZER INC-2011224278

PATIENT
  Age: 27 Year
  Sex: Female
  Weight: 66 kg

DRUGS (2)
  1. VARENICLINE TARTRATE [Suspect]
     Indication: SMOKING CESSATION THERAPY
     Dosage: UNK
     Dates: start: 20090101
  2. VARENICLINE TARTRATE [Suspect]
     Dosage: ONE TABLET OF 1MG IN THE MORNING AND ONE TABLET OF 1MG AT NIGHT
     Route: 048
     Dates: start: 20110818

REACTIONS (5)
  - DEPRESSION [None]
  - CONFUSIONAL STATE [None]
  - NERVOUSNESS [None]
  - MOOD SWINGS [None]
  - CRYING [None]
